FAERS Safety Report 10223794 (Version 1)
Quarter: 2014Q2

REPORT INFORMATION
  Report Type: Spontaneous
  Country: NZ (occurrence: NZ)
  Receive Date: 20140609
  Receipt Date: 20140609
  Transmission Date: 20141212
  Serious: Yes (Other)
  Sender: FDA-Public Use
  Company Number: NZ-JNJFOC-20140518763

PATIENT
  Age: 63 Year
  Sex: Male
  Weight: 71 kg

DRUGS (8)
  1. ZYTIGA [Suspect]
     Indication: PRODUCT USED FOR UNKNOWN INDICATION
     Route: 048
  2. ZYTIGA [Suspect]
     Indication: PRODUCT USED FOR UNKNOWN INDICATION
     Route: 048
     Dates: end: 201311
  3. FLUOXETINE [Concomitant]
     Dosage: IN MORNING
     Route: 065
  4. ZOPLICONE [Concomitant]
     Dosage: HALF A DOSE AT NIGHT
     Route: 065
  5. MORPHINE [Concomitant]
     Dosage: AT NIGHT
     Route: 065
  6. PREDNISONE [Concomitant]
     Dosage: AT LUNCH
     Route: 065
  7. LOSEC [Concomitant]
     Route: 065
  8. LUCRIN [Concomitant]
     Route: 065

REACTIONS (1)
  - Migraine [Recovering/Resolving]
